FAERS Safety Report 20044233 (Version 2)
Quarter: 2021Q4

REPORT INFORMATION
  Report Type: Spontaneous
  Country: CN (occurrence: CN)
  Receive Date: 20211108
  Receipt Date: 20211220
  Transmission Date: 20220303
  Serious: Yes (Other)
  Sender: FDA-Public Use
  Company Number: CN-BRISTOL-MYERS SQUIBB COMPANY-BMS-2021-114018

PATIENT
  Age: 28 Year
  Sex: Female

DRUGS (4)
  1. DASATINIB [Suspect]
     Active Substance: DASATINIB
     Indication: Chronic myeloid leukaemia
     Dosage: 100 MILLIGRAM, QD
     Route: 065
     Dates: start: 201407
  2. DASATINIB [Suspect]
     Active Substance: DASATINIB
     Dosage: 100 MILLIGRAM, QD
     Route: 048
     Dates: start: 201407
  3. CYTARABINE [Concomitant]
     Active Substance: CYTARABINE
     Indication: Chronic myeloid leukaemia
     Dosage: UNK
     Route: 005
  4. OMACETAXINE MEPESUCCINATE [Concomitant]
     Active Substance: OMACETAXINE MEPESUCCINATE
     Indication: Chronic myeloid leukaemia
     Dosage: UNK
     Route: 065

REACTIONS (2)
  - Glomerulonephritis membranous [Unknown]
  - Pleural effusion [Unknown]
